FAERS Safety Report 14578937 (Version 7)
Quarter: 2018Q2

REPORT INFORMATION
  Report Type: Report from Study
  Country: FR (occurrence: FR)
  Receive Date: 20180227
  Receipt Date: 20180613
  Transmission Date: 20180711
  Serious: Yes (Hospitalization)
  Sender: FDA-Public Use
  Company Number: FR-BAYER-2018-032037

PATIENT
  Age: 10 Year
  Sex: Male
  Weight: 19 kg

DRUGS (7)
  1. IRINOTECAN [Suspect]
     Active Substance: IRINOTECAN
     Indication: RHABDOMYOSARCOMA
     Dosage: 44 MG
     Route: 042
     Dates: start: 20180205, end: 20180209
  2. VINCRISTINE [Suspect]
     Active Substance: VINCRISTINE
     Indication: RHABDOMYOSARCOMA
     Dosage: 1.3 MG
     Route: 042
     Dates: start: 20180205, end: 20180205
  3. VINCRISTINE [Suspect]
     Active Substance: VINCRISTINE
     Indication: RHABDOMYOSARCOMA
     Dosage: 1.3 MG
     Route: 042
     Dates: start: 20180212, end: 20180212
  4. IRINOTECAN [Suspect]
     Active Substance: IRINOTECAN
     Indication: RHABDOMYOSARCOMA
     Dosage: 40 MG
     Route: 042
     Dates: start: 20180305
  5. REGORAFENIB. [Suspect]
     Active Substance: REGORAFENIB
     Indication: RHABDOMYOSARCOMA
     Dosage: DAILY DOSE 65 MG
     Route: 048
     Dates: start: 20180205, end: 20180215
  6. REGORAFENIB. [Suspect]
     Active Substance: REGORAFENIB
     Indication: RHABDOMYOSARCOMA
     Dosage: DAILY DOSE 60 MG
     Route: 048
     Dates: start: 20180305
  7. RIVOTRIL [Concomitant]
     Active Substance: CLONAZEPAM
     Indication: NEUROPATHY PERIPHERAL
     Dosage: 0.2MG
     Route: 048
     Dates: start: 20180209

REACTIONS (3)
  - Abdominal pain [Recovered/Resolved]
  - Febrile bone marrow aplasia [Recovered/Resolved]
  - Vomiting [Recovered/Resolved]

NARRATIVE: CASE EVENT DATE: 20180213
